FAERS Safety Report 23933541 (Version 1)
Quarter: 2024Q2

REPORT INFORMATION
  Report Type: Spontaneous
  Country: US (occurrence: None)
  Receive Date: 20240602
  Receipt Date: 20240602
  Transmission Date: 20240716
  Serious: Yes (Other)
  Sender: FDA-Public Use
  Company Number: None

PATIENT
  Sex: Female

DRUGS (1)
  1. ZOLEDRONIC ACID [Suspect]
     Active Substance: ZOLEDRONIC ACID
     Indication: Osteoporosis
     Dosage: OTHER FREQUENCY : ANNUALLY?
     Route: 042
     Dates: start: 20240321

REACTIONS (12)
  - Headache [None]
  - Nausea [None]
  - Dizziness [None]
  - Arthralgia [None]
  - Loss of personal independence in daily activities [None]
  - Muscular weakness [None]
  - Gait disturbance [None]
  - Dysstasia [None]
  - Emotional distress [None]
  - Weight decreased [None]
  - Joint swelling [None]
  - Pain in jaw [None]

NARRATIVE: CASE EVENT DATE: 20240321
